FAERS Safety Report 8051953-4 (Version None)
Quarter: 2012Q1

REPORT INFORMATION
  Report Type: 
  Country: None (occurrence: None)
  Receive Date: 20120118
  Receipt Date: 20120117
  Transmission Date: 20120608
  Serious: Yes (Life-Threatening, Hospitalization, Other)
  Sender: FDA-Public Use
  Company Number: AU-JNJFOC-20110710857

PATIENT
  Age: 42 Year
  Sex: Male

DRUGS (1)
  1. INVEGA [Suspect]
     Indication: SCHIZOPHRENIA
     Dosage: 6MG?
     Route: 048

REACTIONS (3)
  - AKATHISIA [None]
  - HOMICIDAL IDEATION [None]
  - SUICIDAL IDEATION [None]
